FAERS Safety Report 9135826 (Version 1)
Quarter: 2013Q1

REPORT INFORMATION
  Report Type: Spontaneous
  Country: US (occurrence: US)
  Receive Date: 20130304
  Receipt Date: 20130304
  Transmission Date: 20140127
  Serious: No
  Sender: FDA-Public Use
  Company Number: US-ABBOTT-12P-163-0976471-00

PATIENT
  Sex: Male
  Weight: 89.89 kg

DRUGS (4)
  1. ANDROGEL [Suspect]
     Indication: BLOOD TESTOSTERONE DECREASED
     Dates: start: 201207
  2. PRADAXA [Concomitant]
     Indication: HEART RATE IRREGULAR
  3. NOVOLOG [Concomitant]
     Indication: DIABETES MELLITUS
  4. UNKNOWN HEART MEDICATIONS (NON-ABBOTT) [Concomitant]
     Indication: STENT PLACEMENT

REACTIONS (2)
  - Incorrect route of drug administration [Unknown]
  - Acne [Recovered/Resolved]
